FAERS Safety Report 11372907 (Version 1)
Quarter: 2015Q3

REPORT INFORMATION
  Report Type: Spontaneous
  Country: US (occurrence: US)
  Receive Date: 20150811
  Receipt Date: 20150811
  Transmission Date: 20151125
  Serious: No
  Sender: FDA-Public Use
  Company Number: US-ELI_LILLY_AND_COMPANY-US201112004657

PATIENT
  Age: 58 Year
  Sex: Male
  Weight: 94.33 kg

DRUGS (4)
  1. CIALIS [Suspect]
     Active Substance: TADALAFIL
     Indication: ERECTILE DYSFUNCTION
     Dosage: 5 MG, QD
     Route: 048
     Dates: start: 20110606, end: 20110813
  2. LOSARTAN. [Concomitant]
     Active Substance: LOSARTAN
  3. CIALIS [Suspect]
     Active Substance: TADALAFIL
     Dosage: 5 MG, PRN
     Dates: start: 20110926
  4. COREG [Concomitant]
     Active Substance: CARVEDILOL

REACTIONS (2)
  - Myalgia [Unknown]
  - Intentional product misuse [Not Recovered/Not Resolved]

NARRATIVE: CASE EVENT DATE: 20110813
